FAERS Safety Report 6330411-9 (Version None)
Quarter: 2009Q3

REPORT INFORMATION
  Report Type: 
  Country: None (occurrence: None)
  Receive Date: 20090826
  Receipt Date: 20090826
  Transmission Date: 20100115
  Serious: Yes (Hospitalization)
  Sender: FDA-Public Use
  Company Number: None

PATIENT
  Age: 27 Year
  Sex: Male
  Weight: 80.5 kg

DRUGS (4)
  1. RITUXAN [Suspect]
  2. CYTOXAN [Suspect]
  3. VINCRISTINE [Suspect]
  4. CYTARABINE [Suspect]

REACTIONS (1)
  - INFECTION [None]
